FAERS Safety Report 8548551-2 (Version None)
Quarter: 2012Q3

REPORT INFORMATION
  Report Type: 
  Country: None (occurrence: None)
  Receive Date: 20120720
  Receipt Date: 20120720
  Transmission Date: 20120928
  Serious: Yes (Other)
  Sender: FDA-Public Use
  Company Number: None

PATIENT

DRUGS (1)
  1. XIFAXAN [Suspect]
     Indication: DIARRHOEA
     Dosage: 550MG ONCE A DAY PO
     Route: 048
     Dates: start: 20120716, end: 20120719

REACTIONS (3)
  - DIARRHOEA [None]
  - MUSCLE SPASMS [None]
  - DIARRHOEA HAEMORRHAGIC [None]
